FAERS Safety Report 5894769-7 (Version None)
Quarter: 2008Q3

REPORT INFORMATION
  Report Type: 
  Country: None (occurrence: None)
  Receive Date: 20080924
  Receipt Date: 20080616
  Transmission Date: 20090109
  Serious: No
  Sender: FDA-Public Use
  Company Number: US-ASTRAZENECA-2008UW09017

PATIENT
  Age: 17632 Day
  Sex: Female
  Weight: 75 kg

DRUGS (1)
  1. SEROQUEL [Suspect]
     Route: 048
     Dates: start: 20080201, end: 20080501

REACTIONS (1)
  - CONTUSION [None]
